FAERS Safety Report 11746535 (Version 1)
Quarter: 2015Q4

REPORT INFORMATION
  Report Type: Spontaneous
  Country: US (occurrence: None)
  Receive Date: 20151116
  Receipt Date: 20151116
  Transmission Date: 20160304
  Serious: Yes (Hospitalization)
  Sender: FDA-Public Use
  Company Number: None

PATIENT
  Age: 77 Year
  Sex: Female

DRUGS (1)
  1. VITAMIN SUPPLEMENT VITAMIN D3 1500IU/50MG/50/0.5/25/12.5/25/25 GLADES DRUG [Suspect]
     Active Substance: CHOLECALCIFEROL
     Indication: VITAMIN SUPPLEMENTATION
     Route: 048

REACTIONS (4)
  - Vomiting [None]
  - Blood calcium increased [None]
  - Blood potassium decreased [None]
  - Peripheral swelling [None]

NARRATIVE: CASE EVENT DATE: 20150918
